FAERS Safety Report 22844353 (Version 3)
Quarter: 2023Q4

REPORT INFORMATION
  Report Type: Spontaneous
  Country: BG (occurrence: BG)
  Receive Date: 20230821
  Receipt Date: 20231113
  Transmission Date: 20240110
  Serious: Yes (Other)
  Sender: FDA-Public Use
  Company Number: BG-PFM-2023-04633

PATIENT
  Age: 61 Year
  Sex: Male
  Weight: 120 kg

DRUGS (6)
  1. BRAFTOVI [Suspect]
     Active Substance: ENCORAFENIB
     Indication: Metastatic malignant melanoma
     Dosage: 450 MG, QD (1/DAY)
     Route: 048
     Dates: start: 20230524, end: 20230725
  2. BRAFTOVI [Suspect]
     Active Substance: ENCORAFENIB
     Indication: BRAF V600E mutation positive
  3. MEKTOVI [Suspect]
     Active Substance: BINIMETINIB
     Indication: Metastatic malignant melanoma
     Dosage: 45 MG, BID (2/DAY) (EVERY 12 HOURS)
     Route: 048
     Dates: start: 20230524, end: 20230725
  4. MEKTOVI [Suspect]
     Active Substance: BINIMETINIB
     Indication: BRAF V600E mutation positive
  5. METOPROLOL SUCCINATE [Concomitant]
     Active Substance: METOPROLOL SUCCINATE
     Indication: Hypertensive heart disease
     Dosage: 50 MG/50 MG, THIS TREATMENT HAS BEEN TAKEN FOR MORE THAN 10 YEARS
     Route: 048
  6. EXFORGE [Concomitant]
     Active Substance: AMLODIPINE BESYLATE\VALSARTAN
     Indication: Hypertensive heart disease
     Dosage: UNK, THIS TREATMENT HAS BEEN TAKEN FOR MORE THAN 10 YEARS
     Route: 048

REACTIONS (2)
  - Interstitial lung disease [Recovered/Resolved]
  - Pyrexia [Recovered/Resolved]

NARRATIVE: CASE EVENT DATE: 20230720
